FAERS Safety Report 16060289 (Version 2)
Quarter: 2019Q2

REPORT INFORMATION
  Report Type: Spontaneous
  Country: IR (occurrence: IR)
  Receive Date: 20190312
  Receipt Date: 20190624
  Transmission Date: 20190711
  Serious: Yes (Life-Threatening, Hospitalization)
  Sender: FDA-Public Use
  Company Number: IR-SUN PHARMACEUTICAL INDUSTRIES LTD-2019R1-201364

PATIENT
  Age: 38 Year
  Sex: Female

DRUGS (2)
  1. HYDRALAZINE [Suspect]
     Active Substance: HYDRALAZINE HYDROCHLORIDE
     Indication: PRODUCT USED FOR UNKNOWN INDICATION
     Dosage: 750 MILLIGRAM (30 X 25MG TABLETS) FOR SUICIDE ATTEMPT
     Route: 065
  2. CLONAZEPAM. [Concomitant]
     Active Substance: CLONAZEPAM
     Indication: PRODUCT USED FOR UNKNOWN INDICATION
     Dosage: 10 X 1 MILLIGRAM TABLET FOR SUICIDE ATTEMPT
     Route: 048

REACTIONS (5)
  - Acute myocardial infarction [Recovered/Resolved]
  - Overdose [Recovered/Resolved]
  - Myocardial infarction [Recovered/Resolved]
  - Haemodynamic instability [Recovered/Resolved]
  - Suicide attempt [Recovered/Resolved]
